FAERS Safety Report 9313115 (Version 2)
Quarter: 2013Q3

REPORT INFORMATION
  Report Type: Spontaneous
  Country: US (occurrence: US)
  Receive Date: 20130528
  Receipt Date: 20130828
  Transmission Date: 20140515
  Serious: No
  Sender: FDA-Public Use
  Company Number: US-ABBOTT-13P-163-1066543-00

PATIENT
  Age: 62 Year
  Sex: Male
  Weight: 99.88 kg

DRUGS (7)
  1. ANDROGEL [Suspect]
     Indication: BLOOD TESTOSTERONE DECREASED
     Dosage: TWO PUMP ACTUATIONS
     Dates: start: 201211, end: 201303
  2. ANDROGEL [Suspect]
     Indication: BLOOD TESTOSTERONE DECREASED
     Dosage: 2 PMPS
     Dates: start: 201303
  3. ANDROGEL [Suspect]
  4. HYDROCODONE [Concomitant]
     Indication: ARTHRALGIA
  5. ZOLPIDEM [Concomitant]
     Indication: INSOMNIA
  6. ALLOPURINOL [Concomitant]
     Indication: GOUT
  7. OXYCONTIN [Concomitant]
     Indication: PAIN

REACTIONS (2)
  - Blood testosterone decreased [Unknown]
  - Irritability [Unknown]
